FAERS Safety Report 5814475-4 (Version None)
Quarter: 2008Q3

REPORT INFORMATION
  Report Type: 
  Country: None (occurrence: None)
  Receive Date: 20080718
  Receipt Date: 20080709
  Transmission Date: 20090109
  Serious: Yes (Hospitalization)
  Sender: FDA-Public Use
  Company Number: US-ABBOTT-08P-163-0461553-00

PATIENT
  Sex: Female
  Weight: 95.34 kg

DRUGS (1)
  1. ERYTHROMYCIN [Suspect]
     Indication: TOOTH ABSCESS
     Dates: start: 19960101

REACTIONS (2)
  - DEHYDRATION [None]
  - DIARRHOEA [None]
